FAERS Safety Report 13192397 (Version 1)
Quarter: 2017Q1

REPORT INFORMATION
  Report Type: Spontaneous
  Country: FR (occurrence: FR)
  Receive Date: 20170207
  Receipt Date: 20170207
  Transmission Date: 20170428
  Serious: Yes (Hospitalization)
  Sender: FDA-Public Use
  Company Number: PHHY2017FR017317

PATIENT
  Sex: Female

DRUGS (4)
  1. SINEMET LP [Suspect]
     Active Substance: CARBIDOPA\LEVODOPA
     Indication: PARKINSON^S DISEASE
     Dosage: 1 DF, QD (50 MG CARBIDOPA AND 200 MG LEVODOPA)
     Route: 048
     Dates: start: 2015
  2. SINEMET LP [Suspect]
     Active Substance: CARBIDOPA\LEVODOPA
     Dosage: 1 DF, QD (25 MG CARBIDOPA AND 100 MG LEVODOPA)
     Route: 048
  3. STALEVO [Suspect]
     Active Substance: CARBIDOPA\ENTACAPONE\LEVODOPA
     Indication: PARKINSON^S DISEASE
     Dosage: 1 DF, TID (200 MG ENTACAPONE, 150 MG LEVODOPA AND 37.5 MG CARBIDOPA)
     Route: 048
     Dates: start: 2015
  4. STALEVO [Suspect]
     Active Substance: CARBIDOPA\ENTACAPONE\LEVODOPA
     Dosage: 1 DF, TID (200 MG ENTACAPONE, 100 MG LEVODOPA AND 25 MG CARBIDOPA)
     Route: 048

REACTIONS (2)
  - Confusional state [Recovered/Resolved]
  - Hallucination, visual [Recovered/Resolved]
